FAERS Safety Report 9473061 (Version 1)
Quarter: 2013Q3

REPORT INFORMATION
  Report Type: Spontaneous
  Country: US (occurrence: US)
  Receive Date: 20130823
  Receipt Date: 20130823
  Transmission Date: 20140515
  Serious: Yes (Other)
  Sender: FDA-Public Use
  Company Number: US-BRISTOL-MYERS SQUIBB COMPANY-17391459

PATIENT
  Age: 49 Year
  Sex: Male

DRUGS (1)
  1. SPRYCEL [Suspect]
     Indication: CHRONIC MYELOID LEUKAEMIA
     Dosage: INTRUP ON 05FEB2013 AND RESTARTED ^AROUND 09FEB2013^ AT 100MG
     Dates: start: 201301

REACTIONS (2)
  - Pulmonary oedema [Recovering/Resolving]
  - Asthenia [Not Recovered/Not Resolved]
